FAERS Safety Report 5919218-1 (Version None)
Quarter: 2008Q4

REPORT INFORMATION
  Report Type: 
  Country: None (occurrence: None)
  Receive Date: 20081010
  Receipt Date: 20080925
  Transmission Date: 20090506
  Serious: Yes (Other)
  Sender: FDA-Public Use
  Company Number: 8037641

PATIENT

DRUGS (1)
  1. KEPPRA [Suspect]

REACTIONS (1)
  - CEREBROVASCULAR ACCIDENT [None]
